FAERS Safety Report 23538000 (Version 1)
Quarter: 2024Q1

REPORT INFORMATION
  Report Type: Spontaneous
  Country: SA (occurrence: SA)
  Receive Date: 20240219
  Receipt Date: 20240219
  Transmission Date: 20240410
  Serious: Yes (Other)
  Sender: FDA-Public Use
  Company Number: SA-STRIDES ARCOLAB LIMITED-2024SP001897

PATIENT
  Age: 1 Decade
  Sex: Female

DRUGS (12)
  1. PREDNISOLONE [Suspect]
     Active Substance: PREDNISOLONE
     Indication: Nephrotic syndrome
     Dosage: UNK
     Route: 065
  2. PREDNISOLONE [Suspect]
     Active Substance: PREDNISOLONE
     Indication: Glomerulonephritis minimal lesion
  3. LISINOPRIL [Suspect]
     Active Substance: LISINOPRIL
     Indication: Nephrotic syndrome
     Dosage: UNK
     Route: 065
  4. LISINOPRIL [Suspect]
     Active Substance: LISINOPRIL
     Indication: Glomerulonephritis minimal lesion
  5. CALCIUM [Concomitant]
     Active Substance: CALCIUM
     Indication: Nephrotic syndrome
     Dosage: UNK
     Route: 065
  6. CALCIUM [Concomitant]
     Active Substance: CALCIUM
     Indication: Glomerulonephritis minimal lesion
  7. VITAMIN D [Concomitant]
     Active Substance: VITAMIN D NOS
     Indication: Nephrotic syndrome
     Dosage: UNK
     Route: 065
  8. VITAMIN D [Concomitant]
     Active Substance: VITAMIN D NOS
     Indication: Glomerulonephritis minimal lesion
  9. IRON [Concomitant]
     Active Substance: IRON
     Indication: Nephrotic syndrome
     Dosage: UNK
     Route: 065
  10. IRON [Concomitant]
     Active Substance: IRON
     Indication: Glomerulonephritis minimal lesion
  11. RITUXIMAB [Concomitant]
     Active Substance: RITUXIMAB
     Indication: Nephrotic syndrome
     Dosage: 1 GRAM/12 MONTHS
     Route: 065
  12. RITUXIMAB [Concomitant]
     Active Substance: RITUXIMAB
     Indication: Glomerulonephritis minimal lesion

REACTIONS (5)
  - Tooth disorder [Recovered/Resolved]
  - Dental restoration failure [Recovered/Resolved]
  - Impaired healing [Recovered/Resolved]
  - Immune system disorder [Recovered/Resolved]
  - Off label use [Unknown]
